FAERS Safety Report 10138553 (Version 1)
Quarter: 2014Q2

REPORT INFORMATION
  Report Type: Spontaneous
  Country: US (occurrence: US)
  Receive Date: 20140429
  Receipt Date: 20140429
  Transmission Date: 20141212
  Serious: No
  Sender: FDA-Public Use
  Company Number: US-PFIZER INC-2014115194

PATIENT
  Age: 49 Year
  Sex: Male
  Weight: 185.49 kg

DRUGS (6)
  1. TIKOSYN [Suspect]
     Indication: ATRIAL FIBRILLATION
     Dosage: 500 UG, 2X/DAY
     Route: 048
     Dates: start: 2010
  2. CRESTOR [Concomitant]
     Indication: BLOOD CHOLESTEROL INCREASED
     Dosage: 20 MG, 1X/DAY
  3. AZOR [Concomitant]
     Indication: HYPERTENSION
     Dosage: 5/4 MG, 1X/DAY
  4. WARFARIN [Concomitant]
     Dosage: 15MG ONCE A DAY FOR 5 DAYS AND 10MG TABLET ONCE A DAY FOR THE REMAINING TWO DAYS
  5. PREVACID [Concomitant]
     Indication: GASTROOESOPHAGEAL REFLUX DISEASE
     Dosage: UNK
  6. CITALOPRAM [Concomitant]
     Indication: ANXIETY
     Dosage: 20 MG, 1X/DAY

REACTIONS (3)
  - Pain [Recovered/Resolved]
  - Diabetic neuropathy [Unknown]
  - Nerve injury [Unknown]
